FAERS Safety Report 8175434-2 (Version None)
Quarter: 2012Q1

REPORT INFORMATION
  Report Type: 
  Country: None (occurrence: None)
  Receive Date: 20120229
  Receipt Date: 20120221
  Transmission Date: 20120608
  Serious: Yes (Other)
  Sender: FDA-Public Use
  Company Number: US-ASTRAZENECA-2011SE72290

PATIENT
  Age: 64 Year
  Sex: Female
  Weight: 88.7 kg

DRUGS (8)
  1. DAILY VITAMIN [Concomitant]
  2. FOLIC ACID [Concomitant]
  3. SELENIUM [Concomitant]
  4. FISH OIL [Concomitant]
     Dosage: DAILY
  5. ADULT LOW DOSE ASPIRIN [Concomitant]
  6. NAPROXEN (ALEVE) [Concomitant]
  7. CRESTOR [Suspect]
     Indication: BLOOD CHOLESTEROL
     Route: 048
     Dates: start: 20060101
  8. ULTRAZYME [Concomitant]
     Dosage: DAILY

REACTIONS (7)
  - COLON ADENOMA [None]
  - MULTIPLE ALLERGIES [None]
  - WEIGHT DECREASED [None]
  - MOOD ALTERED [None]
  - COLON CANCER [None]
  - HYPOAESTHESIA [None]
  - PARAESTHESIA [None]
